FAERS Safety Report 25403638 (Version 4)
Quarter: 2025Q3

REPORT INFORMATION
  Report Type: Spontaneous
  Country: US (occurrence: US)
  Receive Date: 20250605
  Receipt Date: 20250728
  Transmission Date: 20251021
  Serious: No
  Sender: SANOFI AVENTIS
  Company Number: US-SA-2025SA160238

PATIENT
  Age: 73 Year
  Sex: Female
  Weight: 48.18 kg

DRUGS (1)
  1. DUPIXENT [Suspect]
     Active Substance: DUPILUMAB
     Indication: Dermatitis
     Dosage: 300 MG, QOW
     Route: 058

REACTIONS (9)
  - Herpes zoster [Unknown]
  - Asthenia [Unknown]
  - Skin burning sensation [Unknown]
  - Paraesthesia [Unknown]
  - Condition aggravated [Unknown]
  - Rash pruritic [Unknown]
  - Erythema [Unknown]
  - Pain [Unknown]
  - Product use in unapproved indication [Unknown]

NARRATIVE: CASE EVENT DATE: 20250528
